FAERS Safety Report 19177182 (Version 2)
Quarter: 2021Q2

REPORT INFORMATION
  Report Type: Spontaneous
  Country: GR (occurrence: GR)
  Receive Date: 20210425
  Receipt Date: 20210519
  Transmission Date: 20210717
  Serious: Yes (Other)
  Sender: FDA-Public Use
  Company Number: GR-JNJFOC-20201041347

PATIENT
  Age: 22 Year
  Sex: Male
  Weight: 81 kg

DRUGS (4)
  1. TITUS [Concomitant]
     Indication: ANXIOLYTIC THERAPY
     Dosage: 0,5MG/DAILY (CURRENT DOSAGE), INITIAL DOSAGE AT 4MG
     Route: 065
     Dates: start: 201912
  2. RISPERDAL [Suspect]
     Active Substance: RISPERIDONE
     Indication: BIPOLAR DISORDER
     Dosage: THE INITIAL TOTAL DRUG DOSAGE: 4MG/DAILY (DIVIDED IN THREE (3) DOSAGES/DAILY) FOLLOWING A GRADUAL DE
     Route: 065
     Dates: start: 201912
  3. RISPERDAL [Suspect]
     Active Substance: RISPERIDONE
     Route: 065
     Dates: start: 20210425
  4. ZOLOFT [Concomitant]
     Active Substance: SERTRALINE HYDROCHLORIDE
     Indication: ANTIDEPRESSANT THERAPY
     Dosage: 100MG/DAILY DIVIDED IN 3 DOSAGES
     Route: 065
     Dates: start: 201912

REACTIONS (5)
  - Off label use [Unknown]
  - Affective disorder [Not Recovered/Not Resolved]
  - Arrhythmia [Not Recovered/Not Resolved]
  - Inappropriate schedule of product administration [Unknown]
  - Weight increased [Unknown]

NARRATIVE: CASE EVENT DATE: 201912
